FAERS Safety Report 16126343 (Version 1)
Quarter: 2019Q1

REPORT INFORMATION
  Report Type: Spontaneous
  Country: US (occurrence: US)
  Receive Date: 20190328
  Receipt Date: 20190328
  Transmission Date: 20190418
  Serious: No
  Sender: FDA-Public Use
  Company Number: US-GLAXOSMITHKLINE-US2019051667

PATIENT
  Age: 80 Year
  Sex: Female

DRUGS (1)
  1. EXCEDRIN [Suspect]
     Active Substance: ACETAMINOPHEN\ASPIRIN\CAFFEINE
     Indication: ARTHRITIS
     Dosage: 2 OR 3 PILLS A DAY UNK
     Route: 048

REACTIONS (3)
  - Wrong technique in product usage process [Unknown]
  - Intentional product misuse [Unknown]
  - Incorrect dose administered [Unknown]
